FAERS Safety Report 4625776-X (Version None)
Quarter: 2005Q1

REPORT INFORMATION
  Report Type: 
  Country: None (occurrence: None)
  Receive Date: 20050330
  Receipt Date: 20050315
  Transmission Date: 20050727
  Serious: Yes (Hospitalization)
  Sender: FDA-Public Use
  Company Number: FR_050306050

PATIENT
  Age: 56 Year
  Sex: Female

DRUGS (6)
  1. PROZAC [Suspect]
     Dosage: 20 MG/1 DAY
  2. COUMADIN [Concomitant]
  3. LOVENOX [Concomitant]
  4. MOPRAL (OMEPRAZOLE RATIOPHARM) [Concomitant]
  5. ALDACTONE [Concomitant]
  6. SECTRAL [Concomitant]

REACTIONS (8)
  - ABDOMINAL HAEMATOMA [None]
  - DEEP VEIN THROMBOSIS [None]
  - HAEMOGLOBIN DECREASED [None]
  - HYPOTENSION [None]
  - INTERNATIONAL NORMALISED RATIO DECREASED [None]
  - OVERDOSE [None]
  - PULMONARY EMBOLISM [None]
  - SUICIDE ATTEMPT [None]
